FAERS Safety Report 5771046-6 (Version None)
Quarter: 2008Q2

REPORT INFORMATION
  Report Type: 
  Country: None (occurrence: None)
  Receive Date: 20080613
  Receipt Date: 20080527
  Transmission Date: 20081010
  Serious: Yes (Other)
  Sender: FDA-Public Use
  Company Number: US-ABBOTT-08P-163-0453619-00

PATIENT
  Sex: Female
  Weight: 63.56 kg

DRUGS (2)
  1. HUMIRA [Suspect]
     Indication: PSORIASIS
     Route: 058
     Dates: start: 20080401
  2. ALPRAZOLAM [Concomitant]
     Indication: DRUG USE FOR UNKNOWN INDICATION

REACTIONS (9)
  - BACK PAIN [None]
  - INTERVERTEBRAL DISC PROTRUSION [None]
  - KIDNEY INFECTION [None]
  - MALAISE [None]
  - NAUSEA [None]
  - PYREXIA [None]
  - TOOTH INFECTION [None]
  - URINARY TRACT INFECTION [None]
  - VOMITING [None]
